FAERS Safety Report 4635760-8 (Version None)
Quarter: 2005Q2

REPORT INFORMATION
  Report Type: 
  Country: None (occurrence: None)
  Receive Date: 20050414
  Receipt Date: 20050330
  Transmission Date: 20051028
  Serious: Yes (Hospitalization)
  Sender: FDA-Public Use
  Company Number: DSA_26217_2005

PATIENT
  Age: 71 Year
  Sex: Female

DRUGS (4)
  1. TAVOR [Suspect]
     Dosage: 10 MG ONCE PO
     Route: 048
     Dates: start: 20050329, end: 20050329
  2. LENDORM [Suspect]
     Dosage: 5 MG ONCE PO
     Route: 048
     Dates: start: 20050329, end: 20050329
  3. ZOLPIDEM TARTRATE [Suspect]
     Dosage: 100 MG ONCE PO
     Route: 048
     Dates: start: 20050329, end: 20050329
  4. ZYPREXA [Suspect]
     Dosage: 135 MG ONCE PO
     Route: 048
     Dates: start: 20050329, end: 20050329

REACTIONS (3)
  - INTENTIONAL MISUSE [None]
  - SOPOR [None]
  - TACHYCARDIA [None]
